FAERS Safety Report 17794666 (Version 2)
Quarter: 2020Q2

REPORT INFORMATION
  Report Type: Spontaneous
  Country: US (occurrence: US)
  Receive Date: 20200515
  Receipt Date: 20200520
  Transmission Date: 20200714
  Serious: No
  Sender: FDA-Public Use
  Company Number: US-PFIZER INC-2020193713

PATIENT
  Age: 76 Year
  Sex: Female
  Weight: 76.2 kg

DRUGS (3)
  1. IBRANCE [Suspect]
     Active Substance: PALBOCICLIB
     Indication: BREAST CANCER METASTATIC
     Dosage: 125 MG, CYCLIC
     Route: 048
  2. IBRANCE [Suspect]
     Active Substance: PALBOCICLIB
     Dosage: 75 MG, CYCLIC (ONE CAPSULE, BY MOUTH, DAILY FOR 7 DAYS ON, 7 DAYS OFF)
     Route: 048
  3. IBRANCE [Suspect]
     Active Substance: PALBOCICLIB
     Dosage: 75 MG, CYCLIC(DAILY FOR ONE WEEK ON, TWO WEEKS OFF)
     Route: 048

REACTIONS (3)
  - White blood cell count decreased [Unknown]
  - Off label use [Unknown]
  - Product use issue [Unknown]
